FAERS Safety Report 10872509 (Version 2)
Quarter: 2015Q2

REPORT INFORMATION
  Report Type: Report from Study
  Country: GR (occurrence: GR)
  Receive Date: 20150227
  Receipt Date: 20150401
  Transmission Date: 20150821
  Serious: Yes (Other)
  Sender: FDA-Public Use
  Company Number: GR-ROCHE-1543445

PATIENT

DRUGS (5)
  1. GEMCITABINE [Suspect]
     Active Substance: GEMCITABINE\GEMCITABINE HYDROCHLORIDE
     Indication: NON-SMALL CELL LUNG CANCER
     Route: 065
  2. CISPLATIN. [Suspect]
     Active Substance: CISPLATIN
     Indication: NON-SMALL CELL LUNG CANCER
     Route: 065
  3. BEVACIZUMAB [Suspect]
     Active Substance: BEVACIZUMAB
     Indication: NON-SMALL CELL LUNG CANCER
     Route: 065
  4. VINORELBINE [Suspect]
     Active Substance: VINORELBINE\VINORELBINE TARTRATE
     Indication: NON-SMALL CELL LUNG CANCER
     Route: 048
  5. DOCETAXEL. [Suspect]
     Active Substance: DOCETAXEL
     Indication: NON-SMALL CELL LUNG CANCER
     Route: 065

REACTIONS (12)
  - Leukopenia [Unknown]
  - Febrile neutropenia [Unknown]
  - Haemorrhage [Unknown]
  - Nausea [Unknown]
  - Neurotoxicity [Unknown]
  - Fatigue [Unknown]
  - Anaemia [Unknown]
  - Diarrhoea [Unknown]
  - Thrombocytopenia [Unknown]
  - Stomatitis [Unknown]
  - Hypertension [Unknown]
  - Neutropenia [Unknown]
